FAERS Safety Report 10925388 (Version 1)
Quarter: 2015Q1

REPORT INFORMATION
  Report Type: Spontaneous
  Country: US (occurrence: None)
  Receive Date: 20150316
  Receipt Date: 20150316
  Transmission Date: 20150721
  Serious: Yes (Other)
  Sender: FDA-Public Use
  Company Number: None

PATIENT
  Age: 47 Year
  Sex: Female
  Weight: 58.97 kg

DRUGS (8)
  1. PREMERIN [Concomitant]
  2. SYNTHROID [Concomitant]
     Active Substance: LEVOTHYROXINE SODIUM
  3. MODAFINIL. [Concomitant]
     Active Substance: MODAFINIL
  4. MELOXICAM. [Concomitant]
     Active Substance: MELOXICAM
  5. BIOTIN [Concomitant]
     Active Substance: BIOTIN
  6. PICATO GEL [Suspect]
     Active Substance: INGENOL MEBUTATE
     Indication: ACTINIC KERATOSIS
  7. MULTI VITAMIN [Concomitant]
     Active Substance: VITAMINS
  8. AMITIZA [Concomitant]
     Active Substance: LUBIPROSTONE

REACTIONS (3)
  - Blister [None]
  - Skin discolouration [None]
  - Scar [None]

NARRATIVE: CASE EVENT DATE: 20140415
